FAERS Safety Report 23677273 (Version 4)
Quarter: 2024Q2

REPORT INFORMATION
  Report Type: Other
  Country: CN (occurrence: CN)
  Receive Date: 20240327
  Receipt Date: 20240605
  Transmission Date: 20240716
  Serious: Yes (Hospitalization)
  Sender: FDA-Public Use
  Company Number: CN-002147023-NVSC2024CN059410

PATIENT
  Sex: Female
  Weight: 1 kg

DRUGS (9)
  1. LUCENTIS [Suspect]
     Active Substance: RANIBIZUMAB
     Indication: Retinopathy of prematurity
     Dosage: 0.2 MG (OU) (VITREOUS INJECTION)
     Route: 050
     Dates: start: 20231208, end: 20231208
  2. ATROPINE SULFATE [Concomitant]
     Active Substance: ATROPINE SULFATE
     Dosage: 0.6 MG (IMMEDIATE)
     Dates: start: 20240515, end: 20240515
  3. LIDOCAINE HYDROCHLORIDE [Concomitant]
     Active Substance: LIDOCAINE HYDROCHLORIDE
     Indication: Anaesthesia
     Dosage: 0.01 G (IMMEDIATE)
     Dates: start: 20240515, end: 20240515
  4. EPINEPHRINE HYDROCHLORIDE [Concomitant]
     Active Substance: EPINEPHRINE HYDROCHLORIDE
     Indication: Anaesthesia
     Dosage: 1000 UG (IMMEDIATE, INTRAVENOUS INJECTION)
     Dates: start: 20240515, end: 20240515
  5. FENTANYL CITRATE [Concomitant]
     Active Substance: FENTANYL CITRATE
     Indication: Anaesthesia
     Dosage: 10 UG (IMMEDIATE, INTRAOPERATIVE INTRAVENOUS INJECTION)
     Dates: start: 20240515, end: 20240515
  6. PROPOFOL [Concomitant]
     Active Substance: PROPOFOL
     Indication: Anaesthesia
     Dosage: 20 MG (IMMEDIATE, INTRAOPERATIVE INTRAVENOUS INJECTION)
     Dates: start: 20240515, end: 20240515
  7. SEVOFLURANE [Concomitant]
     Active Substance: SEVOFLURANE
     Indication: Anaesthesia
     Dosage: 13.8 ML (IMMEDIATE, INHALATION)
     Dates: start: 20240515, end: 20240515
  8. SUCCINYLCHOLINE CHLORIDE [Concomitant]
     Active Substance: SUCCINYLCHOLINE CHLORIDE
     Indication: Anaesthesia
     Dosage: 100 MG (IMMEDIATE, INTRAOPERATIVE INTRAVENOUS INJECTION)
     Dates: start: 20240515, end: 20240515
  9. MIDAZOLAM [Concomitant]
     Active Substance: MIDAZOLAM
     Indication: Anaesthesia
     Dosage: 0.5 MG (IMMEDIATE, INTRAOPERATIVE INTRAVENOUS INJECTION)
     Dates: start: 20240515, end: 20240515

REACTIONS (1)
  - Vitreous haemorrhage [Recovered/Resolved]

NARRATIVE: CASE EVENT DATE: 20240102
